FAERS Safety Report 12825215 (Version 1)
Quarter: 2016Q4

REPORT INFORMATION
  Report Type: Report from Study
  Country: US (occurrence: US)
  Receive Date: 20161006
  Receipt Date: 20161006
  Transmission Date: 20170207
  Serious: No
  Sender: FDA-Public Use
  Company Number: US-AMGEN-USASL2016030130

PATIENT
  Age: 88 Year
  Sex: Female

DRUGS (3)
  1. PROLIA [Suspect]
     Active Substance: DENOSUMAB
     Dosage: UNK, Q3MO
     Route: 065
  2. CALCIUM [Concomitant]
     Active Substance: CALCIUM
     Dosage: 1800 MG, UNK
  3. PROLIA [Suspect]
     Active Substance: DENOSUMAB
     Indication: OSTEOPOROSIS POSTMENOPAUSAL
     Dosage: UNK
     Route: 065

REACTIONS (9)
  - Gastrointestinal pain [Unknown]
  - Herpes zoster [Unknown]
  - Haemorrhoids [Unknown]
  - Temporomandibular joint syndrome [Recovered/Resolved]
  - Skin lesion [Unknown]
  - Pain in extremity [Unknown]
  - Intentional product misuse [Unknown]
  - Back pain [Unknown]
  - Condition aggravated [Unknown]
